FAERS Safety Report 9450396 (Version 4)
Quarter: 2016Q3

REPORT INFORMATION
  Report Type: Report from Study
  Country: US (occurrence: US)
  Receive Date: 20130809
  Receipt Date: 20160801
  Transmission Date: 20161109
  Serious: No
  Sender: FDA-Public Use
  Company Number: US-JNJFOC-20130800078

PATIENT
  Age: 25 Year
  Sex: Male
  Weight: 93.44 kg

DRUGS (1)
  1. USTEKINUMAB [Suspect]
     Active Substance: USTEKINUMAB
     Indication: PSORIASIS
     Route: 058
     Dates: start: 20110831

REACTIONS (3)
  - Tooth abscess [Unknown]
  - Hepatitis [Unknown]
  - Anxiety disorder [Unknown]

NARRATIVE: CASE EVENT DATE: 20130220
